FAERS Safety Report 17203992 (Version 2)
Quarter: 2020Q1

REPORT INFORMATION
  Report Type: Spontaneous
  Country: CA (occurrence: CA)
  Receive Date: 20191226
  Receipt Date: 20200115
  Transmission Date: 20200409
  Serious: Yes (Other)
  Sender: FDA-Public Use
  Company Number: CA-EUSA PHARMA-2014-CA-005426

PATIENT
  Age: 3 Month
  Sex: Male

DRUGS (5)
  1. ASPARAGINASE [Suspect]
     Active Substance: ASPARAGINASE
     Indication: CHLOROMA
     Dosage: 5 CYCLES, (2 INDUCTIONS AND 3 INTENSIFICATIONS)
     Dates: end: 201112
  2. CYTARABINE. [Concomitant]
     Active Substance: CYTARABINE
     Indication: DRUG THERAPY
  3. CYTARABINE. [Concomitant]
     Active Substance: CYTARABINE
     Indication: CHLOROMA
     Dosage: 2 TIMES WEEKLY, 5 CYCLES, (2 INDUCTIONS AND 3 INTENSIFICATIONS)
     Route: 037
     Dates: end: 201112
  4. ETOPOSIDE. [Concomitant]
     Active Substance: ETOPOSIDE
     Indication: CHLOROMA
     Dosage: 5 CYCLES, (2 INDUCTIONS AND 3 INTENSIFICATION)
     Dates: end: 201112
  5. DAUNORUBICIN [Concomitant]
     Active Substance: DAUNORUBICIN
     Indication: CHLOROMA
     Dosage: 5 CYCLES, (2 INDUCTIONS AND 3 INTENSIFICATION)
     Dates: end: 201112

REACTIONS (1)
  - Infection [Recovered/Resolved]
